FAERS Safety Report 12001489 (Version 1)
Quarter: 2016Q1

REPORT INFORMATION
  Report Type: Spontaneous
  Country: BR (occurrence: BR)
  Receive Date: 20160204
  Receipt Date: 20160204
  Transmission Date: 20160526
  Serious: Yes (Other)
  Sender: FDA-Public Use
  Company Number: BR-PFIZER INC-2016055186

PATIENT
  Sex: Male

DRUGS (1)
  1. SUTENT [Suspect]
     Active Substance: SUNITINIB MALATE
     Dosage: CYCLE 4 PER 2
     Route: 048
     Dates: start: 201511

REACTIONS (4)
  - Pain in extremity [Unknown]
  - Mouth injury [Unknown]
  - Arthralgia [Unknown]
  - Infarction [Unknown]

NARRATIVE: CASE EVENT DATE: 2015
